FAERS Safety Report 14583148 (Version 2)
Quarter: 2019Q1

REPORT INFORMATION
  Report Type: Spontaneous
  Country: IT (occurrence: IT)
  Receive Date: 20180228
  Receipt Date: 20190221
  Transmission Date: 20190417
  Serious: Yes (Death)
  Sender: FDA-Public Use
  Company Number: IT-BAUSCH-BL-2018-005373

PATIENT
  Age: 89 Year
  Sex: Female
  Weight: 50 kg

DRUGS (6)
  1. METFORMIN HYDROCHLORIDE. [Suspect]
     Active Substance: METFORMIN HYDROCHLORIDE
     Indication: DIABETES MELLITUS
     Route: 048
     Dates: start: 20170101, end: 20170916
  2. LASITONE [Concomitant]
     Active Substance: FUROSEMIDE\SPIRONOLACTONE
     Indication: PRODUCT USED FOR UNKNOWN INDICATION
     Dosage: 25 MG PLUS 37 MG RIGID CAPSULE
     Route: 048
  3. WARFARIN SODIUM. [Concomitant]
     Active Substance: WARFARIN SODIUM
     Indication: PRODUCT USED FOR UNKNOWN INDICATION
     Route: 048
  4. LANOXIN [Concomitant]
     Active Substance: DIGOXIN
     Indication: PRODUCT USED FOR UNKNOWN INDICATION
     Route: 048
  5. LASIX [Concomitant]
     Active Substance: FUROSEMIDE
     Indication: PRODUCT USED FOR UNKNOWN INDICATION
     Route: 048
     Dates: start: 20170101, end: 20170919
  6. ALLOPURINOL. [Concomitant]
     Active Substance: ALLOPURINOL
     Indication: PRODUCT USED FOR UNKNOWN INDICATION
     Route: 048
     Dates: start: 20170101, end: 20170919

REACTIONS (2)
  - Hepatitis acute [Fatal]
  - Lactic acidosis [Fatal]

NARRATIVE: CASE EVENT DATE: 20170916
